FAERS Safety Report 12435152 (Version 1)
Quarter: 2016Q2

REPORT INFORMATION
  Report Type: Spontaneous
  Country: US (occurrence: US)
  Receive Date: 20160603
  Receipt Date: 20160603
  Transmission Date: 20160815
  Serious: No
  Sender: FDA-Public Use
  Company Number: US-ROCHE-1706021

PATIENT
  Sex: Male

DRUGS (4)
  1. MELATONIN [Suspect]
     Active Substance: MELATONIN
     Indication: RAPID EYE MOVEMENT SLEEP BEHAVIOUR DISORDER
     Route: 065
  2. CLONAZEPAM. [Suspect]
     Active Substance: CLONAZEPAM
     Indication: RAPID EYE MOVEMENT SLEEP BEHAVIOUR DISORDER
     Route: 065
  3. CLONAZEPAM. [Suspect]
     Active Substance: CLONAZEPAM
     Route: 065
  4. MELATONIN [Suspect]
     Active Substance: MELATONIN
     Route: 065

REACTIONS (2)
  - Somnolence [Unknown]
  - Treatment failure [Unknown]
